FAERS Safety Report 7438136-3 (Version None)
Quarter: 2011Q2

REPORT INFORMATION
  Report Type: 
  Country: None (occurrence: None)
  Receive Date: 20110426
  Receipt Date: 20110420
  Transmission Date: 20111010
  Serious: Yes (Hospitalization)
  Sender: FDA-Public Use
  Company Number: A0922933A

PATIENT
  Age: 66 Year
  Sex: Female
  Weight: 93.6 kg

DRUGS (28)
  1. NEXIUM [Concomitant]
     Dosage: 40MG PER DAY
     Route: 048
     Dates: start: 20040801
  2. SINGULAIR [Concomitant]
     Indication: ASTHMA
     Dosage: 10MG PER DAY
     Route: 048
     Dates: start: 20070301
  3. MUCINEX DM [Concomitant]
     Dosage: 600MG TWICE PER DAY
     Route: 048
     Dates: start: 20090101
  4. SPIRIVA [Concomitant]
     Indication: ASTHMA
     Dosage: 18MCG PER DAY
     Dates: start: 20070301
  5. MULTI-VITAMIN [Concomitant]
     Indication: SUPPLEMENTATION THERAPY
     Dosage: 1TAB PER DAY
     Route: 048
     Dates: start: 20070301
  6. DECADRON [Concomitant]
     Indication: PREMEDICATION
     Route: 042
     Dates: start: 20110321
  7. ACETAMINOPHEN [Concomitant]
     Dosage: 500MG AS REQUIRED
     Route: 048
     Dates: start: 20110406
  8. TIMOLOL MALEATE [Concomitant]
     Indication: GLAUCOMA
     Dosage: .5PCT PER DAY
     Route: 047
     Dates: start: 20030501
  9. BENADRYL [Concomitant]
     Indication: INFUSION RELATED REACTION
     Dosage: 25MG PER DAY
     Route: 042
     Dates: start: 20110321
  10. CIPRO [Concomitant]
     Dosage: 500MG TWICE PER DAY
     Route: 048
     Dates: start: 20110214, end: 20110316
  11. LEVOTHYROXINE SODIUM [Concomitant]
     Indication: THYROID DISORDER
     Dosage: 75MCG PER DAY
     Route: 048
     Dates: start: 20090101
  12. NOVOLOG [Concomitant]
     Route: 058
     Dates: start: 20091001
  13. XALATAN [Concomitant]
     Indication: GLAUCOMA
     Dosage: .005PCT PER DAY
     Route: 047
     Dates: start: 20030501
  14. CRESTOR [Concomitant]
     Dosage: 10MG PER DAY
     Route: 048
     Dates: start: 20070301
  15. PREDNISONE [Concomitant]
     Dosage: 10MG THREE TIMES PER DAY
     Route: 048
     Dates: start: 20110214, end: 20110317
  16. VITAMIN D [Concomitant]
     Indication: SUPPLEMENTATION THERAPY
     Dosage: 50000U WEEKLY
     Route: 048
     Dates: start: 20100201
  17. NORVASC [Concomitant]
     Indication: HYPERTENSION
     Dosage: 5MG PER DAY
     Route: 048
     Dates: start: 20100201
  18. SYMBICORT [Concomitant]
     Indication: ASTHMA
     Route: 048
     Dates: start: 20090101
  19. LANTUS [Concomitant]
     Dosage: 42UNIT TWICE PER DAY
     Route: 058
     Dates: start: 20091001
  20. POTASSIUM CHLORIDE [Concomitant]
     Indication: SUPPLEMENTATION THERAPY
     Dosage: 10MEQ PER DAY
     Route: 048
     Dates: start: 20100201
  21. CIPRO [Concomitant]
     Dosage: 500MG TWICE PER DAY
     Route: 055
     Dates: start: 20110331
  22. LASIX [Concomitant]
     Dosage: 40MG PER DAY
     Route: 048
     Dates: start: 20100201
  23. ALBUTEROL SULFATE [Concomitant]
     Indication: ASTHMA
     Route: 055
     Dates: start: 20090101
  24. BENADRYL [Concomitant]
     Indication: PREMEDICATION
     Dosage: 50MG AS REQUIRED
     Route: 042
     Dates: start: 20110321
  25. OFATUMUMAB [Suspect]
     Route: 042
     Dates: start: 20110321
  26. CLONIDINE [Concomitant]
     Indication: HYPERTENSION
     Dosage: .2MG TWICE PER DAY
     Route: 048
     Dates: start: 20100201
  27. AMBIEN [Concomitant]
     Indication: INSOMNIA
     Dosage: 10MG AT NIGHT
     Route: 048
     Dates: start: 20090101
  28. CIPRO [Concomitant]
     Dosage: 750MG TWICE PER DAY
     Route: 048
     Dates: start: 20110406

REACTIONS (1)
  - PNEUMONIA [None]
